FAERS Safety Report 14849010 (Version 1)
Quarter: 2018Q2

REPORT INFORMATION
  Report Type: Not Available
  Country: US (occurrence: US)
  Receive Date: 20180504
  Receipt Date: 20180504
  Transmission Date: 20180711
  Serious: Yes (Hospitalization)
  Sender: FDA-Public Use
  Company Number: US-ANIPHARMA-2018-US-007355

PATIENT
  Age: 90 Year
  Sex: Female

DRUGS (5)
  1. XGEVA [Concomitant]
     Active Substance: DENOSUMAB
  2. FASLODEX [Suspect]
     Active Substance: FULVESTRANT
     Route: 042
  3. IBRANCE [Suspect]
     Active Substance: PALBOCICLIB
     Dosage: 125MG/ 100MG/ 75MG
     Route: 048
  4. LETROZOLE. [Concomitant]
     Active Substance: LETROZOLE
  5. ARIMIDEX [Suspect]
     Active Substance: ANASTROZOLE
     Route: 048

REACTIONS (17)
  - Painful respiration [Unknown]
  - White blood cell count decreased [Unknown]
  - Renal impairment [Unknown]
  - Malignant neoplasm progression [Unknown]
  - Anaemia [Unknown]
  - Blister [Unknown]
  - Headache [Unknown]
  - Nausea [Unknown]
  - Pneumonia [Unknown]
  - Odynophagia [Unknown]
  - Bone cancer metastatic [Unknown]
  - Oral mucosal blistering [Unknown]
  - Weight decreased [Unknown]
  - Oesophageal mucosal blister [Unknown]
  - Diarrhoea [Unknown]
  - Myalgia [Unknown]
  - Dehydration [Unknown]

NARRATIVE: CASE EVENT DATE: 2015
